FAERS Safety Report 10614326 (Version 1)
Quarter: 2014Q4

REPORT INFORMATION
  Report Type: Spontaneous
  Country: DE (occurrence: DE)
  Receive Date: 20141128
  Receipt Date: 20141128
  Transmission Date: 20150529
  Serious: Yes (Other)
  Sender: FDA-Public Use
  Company Number: PHHY2014DE152922

PATIENT
  Sex: Male

DRUGS (1)
  1. LEPONEX [Suspect]
     Active Substance: CLOZAPINE
     Indication: PARANOIA
     Dosage: 300 MG, QD
     Route: 065

REACTIONS (4)
  - Drug ineffective [Unknown]
  - Bacterial test positive [Unknown]
  - Endocarditis bacterial [Unknown]
  - Aortic valve disease [Unknown]

NARRATIVE: CASE EVENT DATE: 201411
